FAERS Safety Report 10391163 (Version 2)
Quarter: 2014Q3

REPORT INFORMATION
  Report Type: Spontaneous
  Country: US (occurrence: US)
  Receive Date: 20140818
  Receipt Date: 20140818
  Transmission Date: 20150326
  Serious: Yes (Hospitalization, Other)
  Sender: FDA-Public Use
  Company Number: US-009507513-2009SP037373

PATIENT
  Sex: Female
  Weight: 72.58 kg

DRUGS (2)
  1. GARDASIL [Concomitant]
     Active Substance: HUMAN PAPILLOMAVIRUS QUADRIVALENT (TYPES 6, 11, 16, AND 18) VACCINE, RECOMBINANT
     Indication: PAPILLOMA VIRAL INFECTION
     Dates: start: 20070910, end: 20080317
  2. NUVARING [Suspect]
     Active Substance: ETHINYL ESTRADIOL\ETONOGESTREL
     Indication: CONTRACEPTION
     Route: 067
     Dates: start: 20070716, end: 20071114

REACTIONS (4)
  - Cervical dysplasia [Unknown]
  - Pulmonary embolism [Recovering/Resolving]
  - Vaginal discharge [Unknown]
  - Papilloma viral infection [Unknown]

NARRATIVE: CASE EVENT DATE: 200708
